FAERS Safety Report 5003598-8 (Version None)
Quarter: 2006Q2

REPORT INFORMATION
  Report Type: 
  Country: None (occurrence: None)
  Receive Date: 20060511
  Receipt Date: 20060503
  Transmission Date: 20061013
  Serious: Yes (Other)
  Sender: FDA-Public Use
  Company Number: RB-3258-2006

PATIENT
  Age: 36 Year
  Sex: Male

DRUGS (2)
  1. BUPRENORPHINE HCL [Suspect]
     Indication: DRUG DEPENDENCE
     Dosage: 4 MG
     Dates: start: 20031001
  2. BROMAZEPAM [Concomitant]

REACTIONS (5)
  - DRY SKIN [None]
  - ERYTHEMA [None]
  - FEELING ABNORMAL [None]
  - PANIC REACTION [None]
  - PERSECUTORY DELUSION [None]
